FAERS Safety Report 9210547 (Version 1)
Quarter: 2013Q2

REPORT INFORMATION
  Report Type: Spontaneous
  Country: US (occurrence: US)
  Receive Date: 20130404
  Receipt Date: 20130404
  Transmission Date: 20140414
  Serious: Yes (Other)
  Sender: FDA-Public Use
  Company Number: US-BAYER-2013-039876

PATIENT
  Age: 43 Year
  Sex: Female
  Weight: 60.77 kg

DRUGS (9)
  1. YAZ [Suspect]
  2. YASMIN [Suspect]
  3. FLUTICASONE PROPIONATE [Concomitant]
     Dosage: 50 MCG/IN
     Dates: start: 20090215, end: 20090317
  4. BENZONATATE [Concomitant]
     Dosage: 100 MG, UNK
     Dates: start: 20090317
  5. CELEBREX [Concomitant]
     Dosage: 200 MG, UNK
     Dates: start: 20090326, end: 20090423
  6. SERTRALINE HYDROCHLORIDE [Concomitant]
     Dosage: 50 MG, UNK
     Dates: start: 20081212, end: 20090606
  7. ASPIRIN [Concomitant]
  8. DOXYCYCLINE [Concomitant]
  9. ARTHROTEC [Concomitant]

REACTIONS (2)
  - Pulmonary embolism [None]
  - Pelvic venous thrombosis [None]
